FAERS Safety Report 20035591 (Version 2)
Quarter: 2021Q4

REPORT INFORMATION
  Report Type: Spontaneous
  Country: US (occurrence: US)
  Receive Date: 20211104
  Receipt Date: 20211123
  Transmission Date: 20220303
  Serious: No
  Sender: FDA-Public Use
  Company Number: US-009507513-2110USA002494

PATIENT
  Age: 52 Year
  Sex: Male

DRUGS (8)
  1. PRINIVIL [Suspect]
     Active Substance: LISINOPRIL
     Indication: Myocarditis
     Dosage: LOW-DOSE
     Route: 048
  2. PRINIVIL [Suspect]
     Active Substance: LISINOPRIL
     Dosage: 10 MILLIGRAM, QD
     Route: 048
  3. COVID-19 VACCINE MRNA (MRNA 1273) [Concomitant]
     Indication: Prophylaxis
     Dosage: UNK
  4. COVID-19 VACCINE MRNA (MRNA 1273) [Concomitant]
     Dosage: UNK
  5. ASPIRIN [Concomitant]
     Active Substance: ASPIRIN
     Dosage: 81 MILLIGRAM
  6. SIMVASTATIN [Concomitant]
     Active Substance: SIMVASTATIN
     Dosage: 40 MILLIGRAM
  7. EZETIMIBE [Concomitant]
     Active Substance: EZETIMIBE
     Dosage: 10 MILLIGRAM
  8. CARVEDILOL [Concomitant]
     Active Substance: CARVEDILOL
     Indication: Myocarditis
     Dosage: UNK

REACTIONS (1)
  - Product use in unapproved indication [Unknown]
